FAERS Safety Report 4652735-3 (Version None)
Quarter: 2005Q2

REPORT INFORMATION
  Report Type: 
  Country: None (occurrence: None)
  Receive Date: 20050502
  Receipt Date: 20050419
  Transmission Date: 20051028
  Serious: Yes (Hospitalization, Other)
  Sender: FDA-Public Use
  Company Number: 2005064307

PATIENT
  Age: 66 Year
  Sex: Male

DRUGS (15)
  1. SINUTAB (PSEUDOEPHEDRINE) [Suspect]
     Indication: HYPERSENSITIVITY
     Dosage: 2 TABLETS QD, ORAL
     Route: 048
     Dates: start: 19850101, end: 20041101
  2. FENOFIBRATE [Suspect]
     Indication: TYPE IV HYPERLIPIDAEMIA
     Dosage: 160 MG QD, ORAL
     Route: 048
     Dates: start: 20041001, end: 20041101
  3. EXCEDRIN (MIGRAINE) [Suspect]
     Indication: PAIN
     Dosage: 2000 MG QD, ORAL
     Route: 048
     Dates: start: 19850101, end: 20041101
  4. PHENYTOIN SODIUM [Concomitant]
  5. VERAPAMIL [Concomitant]
  6. DYAZIDE [Concomitant]
  7. EZETIMIBE (EZETIMIBE) [Concomitant]
  8. PYRIDOXINE HYDROCHLORIDE (PYRIDOXINE HYDEROCHLORIDE) [Concomitant]
  9. FOLIC ACID [Concomitant]
  10. BUTALBITAL [Concomitant]
  11. GLUCOSAMINE (GLUCOSAMINE) [Concomitant]
  12. PYSLLIUM HYDROPHILIC MUCILLOID (PSYLLIUM HYDROPHILIC MUCILLOID) [Concomitant]
  13. GEMFIBROZIL [Concomitant]
  14. LACTOBACILLUS ACIDOPHILLUS (LACTOBACILLUS ACIDOPHILUS) [Concomitant]
  15. ASPIRIN [Concomitant]

REACTIONS (5)
  - DIVERTICULITIS [None]
  - HEPATIC ENZYME INCREASED [None]
  - HEPATIC STEATOSIS [None]
  - HEPATOMEGALY [None]
  - SEPSIS [None]
